FAERS Safety Report 7629439-8 (Version None)
Quarter: 2011Q3

REPORT INFORMATION
  Report Type: 
  Country: None (occurrence: None)
  Receive Date: 20110722
  Receipt Date: 20110714
  Transmission Date: 20111222
  Serious: Yes (Hospitalization)
  Sender: FDA-Public Use
  Company Number: BR-US-EMD SERONO, INC.-7071172

PATIENT
  Sex: Female

DRUGS (8)
  1. ACETAMINOPHEN [Concomitant]
     Indication: PREMEDICATION
  2. CEFALOXINA [Concomitant]
  3. REBIF [Suspect]
     Indication: RELAPSING-REMITTING MULTIPLE SCLEROSIS
     Dates: start: 20071101
  4. ATENOLOL [Concomitant]
  5. RIFOCINA [Concomitant]
  6. ACECLOFENAC [Concomitant]
  7. LEVOTHYROXINE SODIUM [Suspect]
     Indication: PRODUCT USED FOR UNKNOWN INDICATION
  8. DRAMIM [Concomitant]

REACTIONS (3)
  - EXOSTOSIS [None]
  - INTERVERTEBRAL DISC PROTRUSION [None]
  - MULTIPLE SCLEROSIS RELAPSE [None]
